FAERS Safety Report 9523644 (Version 1)
Quarter: 2013Q3

REPORT INFORMATION
  Report Type: Spontaneous
  Country: GB (occurrence: GB)
  Receive Date: 20130913
  Receipt Date: 20130913
  Transmission Date: 20140515
  Serious: Yes (Life-Threatening, Hospitalization)
  Sender: FDA-Public Use
  Company Number: GB-B.I. PHARMACEUTICALS,INC./RIDGEFIELD-2013-BI-28775UK

PATIENT
  Age: 76 Year
  Sex: Male

DRUGS (8)
  1. PRADAXA [Suspect]
     Indication: ATRIAL FIBRILLATION
     Dosage: 300 MG
     Route: 048
     Dates: start: 20121016
  2. ATORVASTATIN [Concomitant]
  3. BISOPROLOL [Concomitant]
  4. CANDESARTAN [Concomitant]
  5. DIGOXIN [Concomitant]
  6. MIRTAZAPINE [Concomitant]
  7. TAMSULOSIN [Concomitant]
  8. TRIMETHOPRIM [Concomitant]

REACTIONS (7)
  - Acidosis [Unknown]
  - Haemorrhage [Recovered/Resolved with Sequelae]
  - Duodenal ulcer haemorrhage [Recovered/Resolved]
  - Haemodynamic instability [Unknown]
  - Hypothermia [Unknown]
  - Loss of consciousness [Unknown]
  - Upper gastrointestinal haemorrhage [Recovered/Resolved with Sequelae]
